FAERS Safety Report 10584490 (Version 1)
Quarter: 2014Q4

REPORT INFORMATION
  Report Type: Spontaneous
  Country: US (occurrence: None)
  Receive Date: 20141113
  Receipt Date: 20141113
  Transmission Date: 20150529
  Serious: Yes (Other)
  Sender: FDA-Public Use
  Company Number: None

PATIENT
  Age: 56 Year
  Sex: Female
  Weight: 75.3 kg

DRUGS (9)
  1. COENZYME Q10 [Concomitant]
     Active Substance: UBIDECARENONE
  2. FISH OIL [Concomitant]
     Active Substance: FISH OIL
  3. PROGESTERONE. [Concomitant]
     Active Substance: PROGESTERONE
  4. CELEBREX [Concomitant]
     Active Substance: CELECOXIB
  5. MULTIPLE VITAMIN [Concomitant]
     Active Substance: VITAMINS
  6. FOLIC ACID. [Concomitant]
     Active Substance: FOLIC ACID
  7. IMIQUIMOD. [Suspect]
     Active Substance: IMIQUIMOD
     Indication: ACTINIC KERATOSIS
     Dosage: APPLY TO AFFECTED AREAS, QD, TOPICAL
     Route: 061
     Dates: start: 20141001, end: 20141007
  8. ESTRADIOL. [Concomitant]
     Active Substance: ESTRADIOL
  9. VITAMIN D3 [Concomitant]
     Active Substance: CHOLECALCIFEROL

REACTIONS (7)
  - Pyrexia [None]
  - Chills [None]
  - Stomatitis [None]
  - Myalgia [None]
  - Malaise [None]
  - Lip swelling [None]
  - Lethargy [None]

NARRATIVE: CASE EVENT DATE: 20141008
